FAERS Safety Report 18474068 (Version 3)
Quarter: 2020Q4

REPORT INFORMATION
  Report Type: Spontaneous
  Country: US (occurrence: US)
  Receive Date: 20201106
  Receipt Date: 20201116
  Transmission Date: 20210114
  Serious: No
  Sender: FDA-Public Use
  Company Number: US-PFIZER INC-2020423179

PATIENT

DRUGS (2)
  1. CYANOKIT [Suspect]
     Active Substance: HYDROXOCOBALAMIN
     Dosage: UNK
  2. HEPARIN SODIUM. [Suspect]
     Active Substance: HEPARIN SODIUM
     Dosage: UNK

REACTIONS (1)
  - Anticoagulation drug level abnormal [Unknown]
